FAERS Safety Report 7991251-8 (Version None)
Quarter: 2011Q4

REPORT INFORMATION
  Report Type: 
  Country: None (occurrence: None)
  Receive Date: 20111219
  Receipt Date: 20111213
  Transmission Date: 20120403
  Serious: Yes (Hospitalization)
  Sender: FDA-Public Use
  Company Number: JP-GLAXOSMITHKLINE-B0769634A

PATIENT
  Age: 82 Year
  Sex: Female

DRUGS (5)
  1. ETHYL LOFLAZEPATE [Concomitant]
     Dosage: 1MG PER DAY
     Route: 048
  2. PAROXETINE HCL [Suspect]
     Dosage: 20MG PER DAY
     Route: 048
  3. CHINESE MEDICINE [Concomitant]
     Dosage: 7.5G PER DAY
     Route: 048
  4. DONEPEZIL HYDROCHLORIDE [Concomitant]
     Dosage: 5MG PER DAY
     Route: 048
  5. MIRTAZAPINE [Concomitant]
     Dosage: 15MG PER DAY
     Route: 048

REACTIONS (9)
  - SCREAMING [None]
  - CEREBRAL ATROPHY [None]
  - SLEEP DISORDER [None]
  - FOOD CRAVING [None]
  - WEIGHT INCREASED [None]
  - INSOMNIA [None]
  - AMNESIA [None]
  - DEMENTIA ALZHEIMER'S TYPE [None]
  - SENILE DEMENTIA [None]
